FAERS Safety Report 19744316 (Version 8)
Quarter: 2023Q1

REPORT INFORMATION
  Report Type: Report from Study
  Country: DE (occurrence: DE)
  Receive Date: 20210825
  Receipt Date: 20230227
  Transmission Date: 20230417
  Serious: Yes (Other)
  Sender: FDA-Public Use
  Company Number: DE-002147023-PHHY2019DE062558

PATIENT
  Sex: Female
  Weight: 100 kg

DRUGS (4)
  1. LETROZOLE [Suspect]
     Active Substance: LETROZOLE
     Indication: Breast cancer
     Dosage: 2.5 MILLIGRAM, QD, 2.5 MG, QD (DAILY)
     Route: 048
     Dates: start: 20190123, end: 20200604
  2. KISQALI [Suspect]
     Active Substance: RIBOCICLIB
     Indication: Breast cancer
     Dosage: 400 MILLIGRAM, QD, 400 MG, QD (ADMINISTRATION SC
     Route: 048
     Dates: start: 20190613, end: 20200311
  3. KISQALI [Suspect]
     Active Substance: RIBOCICLIB
     Dosage: 600 MG, QD (SCHEME 21 DAYS INTAKE, 7 DAYS PAUSE)
     Route: 048
     Dates: start: 20190123, end: 20190506
  4. KISQALI [Suspect]
     Active Substance: RIBOCICLIB
     Dosage: 400 MILLIGRAM, QD, 400 MG, QD (ADMINISTRATION SC
     Route: 048
     Dates: start: 20200518, end: 20200604

REACTIONS (10)
  - Uterine polyp [Recovered/Resolved]
  - Gastrooesophageal reflux disease [Recovered/Resolved]
  - Influenza like illness [Recovered/Resolved]
  - Onychoclasis [Recovered/Resolved]
  - Diplopia [Recovering/Resolving]
  - Vaginal haemorrhage [Recovered/Resolved]
  - Arthralgia [Not Recovered/Not Resolved]
  - Sleep disorder [Recovering/Resolving]
  - Nausea [Recovered/Resolved]
  - Fatigue [Unknown]

NARRATIVE: CASE EVENT DATE: 20190202
